FAERS Safety Report 10968651 (Version 1)
Quarter: 2015Q1

REPORT INFORMATION
  Report Type: Spontaneous
  Country: FR (occurrence: FR)
  Receive Date: 20150330
  Receipt Date: 20150330
  Transmission Date: 20150721
  Serious: Yes (Hospitalization)
  Sender: FDA-Public Use
  Company Number: FR-MERCK-1503FRA013543

PATIENT
  Age: 86 Year
  Sex: Male

DRUGS (12)
  1. TAHOR [Concomitant]
     Active Substance: ATORVASTATIN CALCIUM
     Dosage: 20 MG IN THE MORNING
     Route: 048
  2. JANUVIA [Suspect]
     Active Substance: SITAGLIPTIN PHOSPHATE
     Dosage: 50 MG, IN THE EVENING
     Route: 048
     Dates: start: 20140314, end: 20141226
  3. TAREG [Concomitant]
     Active Substance: VALSARTAN
     Dosage: UNK
     Route: 048
  4. COLCHIMAX (COLCHICINE (+) DICYCLOMINE HYDROCHLORIDE) [Concomitant]
     Active Substance: COLCHICINE\DICYCLOMINE HYDROCHLORIDE
     Dosage: DISCONTINUING
     Route: 048
  5. ALLOPURINOL. [Concomitant]
     Active Substance: ALLOPURINOL
     Dosage: 1 DF, QD
     Route: 048
  6. LANTUS [Concomitant]
     Active Substance: INSULIN GLARGINE
     Dosage: 60 IU, HS
     Route: 058
  7. NOVORAPID [Concomitant]
     Active Substance: INSULIN ASPART
     Dosage: 10 IU, 2 QD
     Route: 058
  8. ELIQUIS [Concomitant]
     Active Substance: APIXABAN
     Dosage: 2.5 MG, 2 QD
     Route: 048
  9. DISCOTRINE [Concomitant]
     Active Substance: NITROGLYCERIN
     Dosage: 1 DF, QD
     Route: 062
  10. EZETROL [Concomitant]
     Active Substance: EZETIMIBE
     Dosage: 20 MG, IN THE EVENING
     Route: 048
  11. LYRICA [Concomitant]
     Active Substance: PREGABALIN
     Dosage: 150 MG, 2 QD
     Route: 048
  12. BURINEX [Concomitant]
     Active Substance: BUMETANIDE
     Dosage: 3 , QD
     Route: 048

REACTIONS (1)
  - Lung disorder [Recovered/Resolved]

NARRATIVE: CASE EVENT DATE: 20141101
